FAERS Safety Report 5145047-5 (Version None)
Quarter: 2006Q4

REPORT INFORMATION
  Report Type: 
  Country: None (occurrence: None)
  Receive Date: 20061107
  Receipt Date: 20061028
  Transmission Date: 20070319
  Serious: Yes (Death)
  Sender: FDA-Public Use
  Company Number: JP-GLAXOSMITHKLINE-B0444835A

PATIENT
  Age: 60 Year
  Sex: Female

DRUGS (2)
  1. FLUTIDE [Suspect]
     Indication: DRUG USE FOR UNKNOWN INDICATION
     Dosage: 200MCG TWICE PER DAY
     Route: 055
  2. SEREVENT [Concomitant]
     Dosage: 50MCG TWICE PER DAY
     Route: 055

REACTIONS (3)
  - ASTHMA [None]
  - DEATH [None]
  - RESPIRATORY ARREST [None]
